FAERS Safety Report 19653422 (Version 1)
Quarter: 2021Q3

REPORT INFORMATION
  Report Type: Report from Study
  Country: HK (occurrence: HK)
  Receive Date: 20210803
  Receipt Date: 20210803
  Transmission Date: 20211014
  Serious: Yes (Other)
  Sender: FDA-Public Use
  Company Number: HK-TEVA-2021-HK-1938195

PATIENT
  Age: 39 Year
  Sex: Male

DRUGS (7)
  1. MELATONIN [Suspect]
     Active Substance: MELATONIN
     Indication: WEIGHT DECREASED
     Route: 065
  2. CHLORPHENIRAMINE. [Suspect]
     Active Substance: CHLORPHENIRAMINE
     Indication: WEIGHT DECREASED
     Route: 065
  3. OMEPRAZOLE. [Suspect]
     Active Substance: OMEPRAZOLE
     Indication: WEIGHT DECREASED
     Route: 065
  4. LORCASERIN [Suspect]
     Active Substance: LORCASERIN HYDROCHLORIDE
     Indication: WEIGHT DECREASED
     Route: 065
  5. FUROSEMIDE. [Suspect]
     Active Substance: FUROSEMIDE
     Indication: WEIGHT DECREASED
     Route: 065
  6. FLUOXETINE [Suspect]
     Active Substance: FLUOXETINE HYDROCHLORIDE
     Indication: WEIGHT DECREASED
     Route: 065
  7. BISACODYL. [Suspect]
     Active Substance: BISACODYL
     Indication: WEIGHT DECREASED
     Route: 065

REACTIONS (6)
  - Intentional product misuse [Unknown]
  - Dizziness [Unknown]
  - Loss of consciousness [Unknown]
  - Headache [Unknown]
  - Toxicity to various agents [Unknown]
  - Off label use [Unknown]
